FAERS Safety Report 8361531-5 (Version None)
Quarter: 2012Q2

REPORT INFORMATION
  Report Type: 
  Country: None (occurrence: None)
  Receive Date: 20120515
  Receipt Date: 20120503
  Transmission Date: 20120825
  Serious: Yes (Hospitalization)
  Sender: FDA-Public Use
  Company Number: US-ELI_LILLY_AND_COMPANY-US201205001639

PATIENT
  Age: 55 Year
  Sex: Female

DRUGS (4)
  1. ANTIDEPRESSANTS [Concomitant]
  2. ANTIHYPERTENSIVES [Concomitant]
  3. ANXIOLYTICS [Concomitant]
  4. CYMBALTA [Suspect]
     Indication: PAIN
     Dosage: 60 MG, UNK

REACTIONS (1)
  - MENTAL DISORDER [None]
